FAERS Safety Report 26079101 (Version 1)
Quarter: 2025Q4

REPORT INFORMATION
  Report Type: Spontaneous
  Country: JP (occurrence: JP)
  Receive Date: 20251123
  Receipt Date: 20251123
  Transmission Date: 20260119
  Serious: Yes (Other)
  Sender: AMGEN
  Company Number: JP-DSJP-DS-2025-177749-

PATIENT
  Sex: Female

DRUGS (2)
  1. DENOSUMAB [Suspect]
     Active Substance: DENOSUMAB
     Indication: Osteoporosis
     Dosage: UNK
     Route: 065
  2. DENOSUMAB [Suspect]
     Active Substance: DENOSUMAB
     Dosage: UNK
     Route: 065
     Dates: start: 20250519

REACTIONS (1)
  - Polymyalgia rheumatica [Not Recovered/Not Resolved]

NARRATIVE: CASE EVENT DATE: 20250101
